FAERS Safety Report 6128147-2 (Version None)
Quarter: 2009Q1

REPORT INFORMATION
  Report Type: 
  Country: None (occurrence: None)
  Receive Date: 20090320
  Receipt Date: 20090320
  Transmission Date: 20090719
  Serious: Yes (Hospitalization)
  Sender: FDA-Public Use
  Company Number: None

PATIENT
  Age: 72 Year
  Sex: Female
  Weight: 71.6683 kg

DRUGS (1)
  1. ZYRTEC [Suspect]
     Indication: HYPERSENSITIVITY
     Dosage: 10MG ONCE DAILY PO
     Route: 048
     Dates: start: 20090307, end: 20090319

REACTIONS (6)
  - ATAXIA [None]
  - DIZZINESS [None]
  - NEURITIS [None]
  - PAPILLOEDEMA [None]
  - VERTIGO [None]
  - VESTIBULAR DISORDER [None]
